FAERS Safety Report 9096770 (Version 1)
Quarter: 2013Q1

REPORT INFORMATION
  Report Type: Spontaneous
  Country: KR (occurrence: KR)
  Receive Date: 20130211
  Receipt Date: 20130211
  Transmission Date: 20140127
  Serious: Yes (Death, Hospitalization)
  Sender: FDA-Public Use
  Company Number: KR-PFIZER INC-2012128548

PATIENT
  Age: 51 Year
  Sex: Female
  Weight: 52.1 kg

DRUGS (8)
  1. AROMASIN [Suspect]
     Indication: BREAST CANCER
     Dosage: 25 MG, 1X/DAY
     Route: 048
     Dates: start: 20110930, end: 20111103
  2. LEGALON [Concomitant]
     Indication: ANTIVIRAL PROPHYLAXIS
     Dosage: 2 DF, 2 TABLETS, 280 MG DAILY
     Dates: start: 20110930, end: 20111103
  3. PHAZYME [Concomitant]
     Indication: PROPHYLAXIS
     Dosage: 3 DF, DAILY
     Dates: start: 20110930, end: 20111103
  4. MAGNESIUM OXIDE [Concomitant]
     Indication: CONSTIPATION
     Dosage: 500 MG, DAILY
     Dates: start: 20110930, end: 20111103
  5. GABAPENTIN [Concomitant]
     Indication: NEUROPATHY PERIPHERAL
     Dosage: 900 MG, DAILY
     Dates: start: 20110930, end: 20111103
  6. SUCRALFATE [Concomitant]
     Indication: GASTRITIS PROPHYLAXIS
     Dosage: 3 G, DAILY
     Dates: start: 20110930, end: 20111103
  7. OXYCODONE [Concomitant]
     Indication: PAIN MANAGEMENT
     Dosage: 120 MG, DAILY
     Dates: start: 20110930, end: 20111103
  8. FENTANYL [Concomitant]
     Indication: PAIN MANAGEMENT
     Dosage: 25/3 MCG DAILY
     Dates: start: 20110930, end: 20111103

REACTIONS (1)
  - Pleural effusion [Fatal]
